FAERS Safety Report 12518724 (Version 2)
Quarter: 2016Q3

REPORT INFORMATION
  Report Type: Report from Study
  Country: US (occurrence: US)
  Receive Date: 20160630
  Receipt Date: 20160719
  Transmission Date: 20161109
  Serious: Yes (Hospitalization)
  Sender: FDA-Public Use
  Company Number: US-ABBVIE-16K-163-1662353-00

PATIENT
  Age: 34 Year
  Sex: Female

DRUGS (3)
  1. CLONAZEPAM. [Suspect]
     Active Substance: CLONAZEPAM
     Indication: PRODUCT USED FOR UNKNOWN INDICATION
     Route: 065
  2. ZOLOFT [Suspect]
     Active Substance: SERTRALINE HYDROCHLORIDE
     Indication: PRODUCT USED FOR UNKNOWN INDICATION
     Route: 065
  3. HUMIRA [Suspect]
     Active Substance: ADALIMUMAB
     Indication: CROHN^S DISEASE
     Route: 058
     Dates: start: 201606

REACTIONS (5)
  - Obstructive airways disorder [Recovered/Resolved]
  - Accidental overdose [Not Recovered/Not Resolved]
  - Bradycardia [Recovered/Resolved]
  - Suicidal ideation [Recovered/Resolved]
  - Laceration [Recovered/Resolved]

NARRATIVE: CASE EVENT DATE: 201606
